FAERS Safety Report 9028581 (Version 2)
Quarter: 2013Q1

REPORT INFORMATION
  Report Type: Spontaneous
  Country: FR (occurrence: FR)
  Receive Date: 20130124
  Receipt Date: 20130222
  Transmission Date: 20140127
  Serious: Yes (Hospitalization)
  Sender: FDA-Public Use
  Company Number: FR-GLAXOSMITHKLINE-B0858728A

PATIENT
  Age: 44 None
  Sex: Female

DRUGS (10)
  1. WELLVONE [Suspect]
     Indication: PRODUCT USED FOR UNKNOWN INDICATION
     Dosage: 750MG TWICE PER DAY
     Route: 048
     Dates: end: 20121219
  2. ISENTRESS [Suspect]
     Indication: HIV INFECTION
     Dosage: 800MG PER DAY
     Route: 048
     Dates: start: 20121109
  3. TRUVADA [Suspect]
     Indication: HIV INFECTION
     Route: 048
     Dates: start: 20121109
  4. RIMIFON [Suspect]
     Indication: DISSEMINATED TUBERCULOSIS
     Dosage: 200MG PER DAY
     Route: 048
  5. LYRICA [Suspect]
     Indication: PRODUCT USED FOR UNKNOWN INDICATION
     Dosage: 50MG PER DAY
     Route: 048
     Dates: end: 20121219
  6. FLUCONAZOLE [Suspect]
     Indication: CRYPTOCOCCOSIS
     Dosage: 400MG PER DAY
     Route: 048
     Dates: start: 20121109, end: 20121219
  7. ANSATIPINE [Suspect]
     Indication: DISSEMINATED TUBERCULOSIS
     Dosage: 450MG PER DAY
     Route: 048
     Dates: end: 20121219
  8. VITAMIN B1 + VITAMIN B6 [Concomitant]
  9. ATRIPLA [Concomitant]
     Dates: end: 20121109
  10. INTELENCE [Concomitant]
     Route: 048
     Dates: start: 20121205, end: 20121206

REACTIONS (11)
  - Drug reaction with eosinophilia and systemic symptoms [Recovered/Resolved]
  - Rash macular [Recovered/Resolved]
  - Pruritus [Recovered/Resolved]
  - Liver injury [Recovered/Resolved]
  - Eosinophilia [Recovered/Resolved]
  - Agranulocytosis [Recovered/Resolved]
  - Oedema [Recovered/Resolved]
  - Vomiting [Recovered/Resolved]
  - Decreased appetite [Recovered/Resolved]
  - Haematemesis [Recovered/Resolved]
  - Pyrexia [Recovered/Resolved]
